FAERS Safety Report 5709679-5 (Version None)
Quarter: 2008Q2

REPORT INFORMATION
  Report Type: 
  Country: None (occurrence: None)
  Receive Date: 20080418
  Receipt Date: 20080410
  Transmission Date: 20081010
  Serious: Yes (Hospitalization)
  Sender: FDA-Public Use
  Company Number: US-NOVOPROD-273469

PATIENT
  Age: 70 Year
  Sex: Female
  Weight: 113.38 kg

DRUGS (2)
  1. NOVOLOG MIX 70/30 [Suspect]
     Indication: INSULIN-REQUIRING TYPE 2 DIABETES MELLITUS
     Dosage: UNKNOWN
     Route: 058
  2. NOVOLOG MIX 70/30 [Suspect]
     Dosage: SLIDING SCALE
     Route: 058
     Dates: start: 20080301

REACTIONS (7)
  - DRY MOUTH [None]
  - NAUSEA [None]
  - POISONING [None]
  - RENAL IMPAIRMENT [None]
  - RETCHING [None]
  - STOMACH DISCOMFORT [None]
  - VOMITING [None]
